FAERS Safety Report 12827845 (Version 1)
Quarter: 2016Q4

REPORT INFORMATION
  Report Type: Spontaneous
  Country: FR (occurrence: FR)
  Receive Date: 20161007
  Receipt Date: 20161007
  Transmission Date: 20170207
  Serious: Yes (Disabling)
  Sender: FDA-Public Use
  Company Number: FR-TEVA-697529ROM

PATIENT
  Sex: Female

DRUGS (1)
  1. TAMOXIFEN [Suspect]
     Active Substance: TAMOXIFEN
     Indication: BREAST CANCER

REACTIONS (6)
  - Sensory loss [Not Recovered/Not Resolved]
  - Amnesia [Not Recovered/Not Resolved]
  - Disturbance in attention [Not Recovered/Not Resolved]
  - Diarrhoea [Unknown]
  - Adverse event [Unknown]
  - Limb discomfort [Not Recovered/Not Resolved]
